FAERS Safety Report 16698764 (Version 3)
Quarter: 2021Q4

REPORT INFORMATION
  Report Type: Spontaneous
  Country: JP (occurrence: JP)
  Receive Date: 20190813
  Receipt Date: 20211122
  Transmission Date: 20220303
  Serious: Yes (Life-Threatening, Hospitalization, Disabling, Other)
  Sender: FDA-Public Use
  Company Number: JP-MSD-M2019-19204

PATIENT
  Age: 65 Year
  Sex: Female
  Weight: 52 kg

DRUGS (9)
  1. BRIDION [Suspect]
     Active Substance: SUGAMMADEX
     Dosage: 200 MILLIGRAM, QD
     Route: 042
     Dates: start: 20190712, end: 20190712
  2. ROCURONIUM BROMIDE [Suspect]
     Active Substance: ROCURONIUM BROMIDE
     Indication: Neuromuscular blockade reversal
     Dosage: 40 MILLIGRAM
     Route: 042
     Dates: start: 20190712, end: 20190712
  3. REMIFENTANIL HYDROCHLORIDE [Suspect]
     Active Substance: REMIFENTANIL HYDROCHLORIDE
     Indication: Maintenance of anaesthesia
     Dosage: 0.15-0.3 MICROGRAM /KILOGRAM/MIN
     Route: 042
     Dates: start: 20190712, end: 20190712
  4. FENTANYL CITRATE [Suspect]
     Active Substance: FENTANYL CITRATE
     Indication: Maintenance of anaesthesia
     Dosage: 50 MICROGRAM, QID
     Route: 042
     Dates: start: 20190712, end: 20190712
  5. PROPOFOL [Suspect]
     Active Substance: PROPOFOL
     Indication: Induction of anaesthesia
     Dosage: 120 MILLIGRAM, QD
     Route: 042
     Dates: start: 20190712, end: 20190712
  6. TELMISARTAN [Concomitant]
     Active Substance: TELMISARTAN
     Dosage: UNK
     Route: 065
  7. TRICHLORMETHIAZIDE [Concomitant]
     Active Substance: TRICHLORMETHIAZIDE
     Dosage: UNK
     Route: 065
  8. POLAPREZINC [Concomitant]
     Active Substance: POLAPREZINC
     Dosage: UNK
     Route: 065
  9. ACETAMINOPHEN [Concomitant]
     Active Substance: ACETAMINOPHEN
     Indication: Analgesic therapy
     Dosage: 1000 MILLIGRAM, QD
     Route: 042
     Dates: start: 20190712, end: 20190712

REACTIONS (5)
  - Respiratory arrest [Recovered/Resolved with Sequelae]
  - Hypoxic-ischaemic encephalopathy [Recovered/Resolved]
  - Hypotension [Recovered/Resolved with Sequelae]
  - Bradycardia [Recovered/Resolved with Sequelae]
  - Anaphylactic shock [Recovered/Resolved]

NARRATIVE: CASE EVENT DATE: 20190712
